FAERS Safety Report 14890920 (Version 2)
Quarter: 2018Q3

REPORT INFORMATION
  Report Type: Spontaneous
  Country: GB (occurrence: GB)
  Receive Date: 20180514
  Receipt Date: 20180827
  Transmission Date: 20181010
  Serious: Yes (Other)
  Sender: FDA-Public Use
  Company Number: GB-SA-2018SA129120

PATIENT
  Sex: Female

DRUGS (3)
  1. CARBIMAZOLE DCI [Concomitant]
     Dosage: UNK
  2. LEMTRADA [Suspect]
     Active Substance: ALEMTUZUMAB
     Indication: RELAPSING-REMITTING MULTIPLE SCLEROSIS
     Dosage: UNK UNK,UNK
     Route: 041
  3. PROPRANOLOL [Concomitant]
     Active Substance: PROPRANOLOL HYDROCHLORIDE

REACTIONS (4)
  - Pulmonary embolism [Unknown]
  - Nervous system disorder [Unknown]
  - Cough [Not Recovered/Not Resolved]
  - Influenza [Unknown]

NARRATIVE: CASE EVENT DATE: 2018
